FAERS Safety Report 5515181-6 (Version None)
Quarter: 2007Q4

REPORT INFORMATION
  Report Type: 
  Country: None (occurrence: None)
  Receive Date: 20071113
  Receipt Date: 20070131
  Transmission Date: 20080405
  Serious: No
  Sender: FDA-Public Use
  Company Number: A0637788A

PATIENT
  Sex: Male

DRUGS (5)
  1. COREG [Suspect]
     Dosage: 12.5MG PER DAY
     Route: 048
  2. ALLOPURINOL [Concomitant]
  3. COUMADIN [Concomitant]
  4. SIMVASTATIN [Concomitant]
  5. FOSINOPRIL SODIUM [Concomitant]

REACTIONS (1)
  - DYSPNOEA [None]
